FAERS Safety Report 24832016 (Version 1)
Quarter: 2025Q1

REPORT INFORMATION
  Report Type: Spontaneous
  Country: US (occurrence: None)
  Receive Date: 20250109
  Receipt Date: 20250109
  Transmission Date: 20250409
  Serious: No
  Sender: FDA-CTU
  Company Number: None

PATIENT

DRUGS (1)
  1. LUPRON [Suspect]
     Active Substance: LEUPROLIDE ACETATE

REACTIONS (5)
  - Musculoskeletal chest pain [None]
  - Back pain [None]
  - Arthralgia [None]
  - Anaemia [None]
  - Oedema peripheral [None]
